FAERS Safety Report 8385705-2 (Version None)
Quarter: 2012Q2

REPORT INFORMATION
  Report Type: 
  Country: None (occurrence: None)
  Receive Date: 20120525
  Receipt Date: 20120514
  Transmission Date: 20120825
  Serious: Yes (Life-Threatening, Hospitalization)
  Sender: FDA-Public Use
  Company Number: FR-BRISTOL-MYERS SQUIBB COMPANY-16607830

PATIENT
  Age: 70 Year
  Sex: Female

DRUGS (12)
  1. SECTRAL [Concomitant]
  2. VALSARTAN  AND HYDROCHLOROTHIAZIDE [Concomitant]
  3. AMARYL [Concomitant]
  4. VOLTAREN [Concomitant]
  5. GLUCOPHAGE [Suspect]
     Route: 048
     Dates: end: 20120126
  6. CRESTOR [Concomitant]
  7. OXAZEPAM [Concomitant]
  8. OMEPRAZOLE [Concomitant]
  9. REPAGLINIDE [Concomitant]
  10. PRAZEPAM [Concomitant]
  11. RASILEZ [Concomitant]
  12. IMODIUM [Concomitant]

REACTIONS (2)
  - LACTIC ACIDOSIS [None]
  - CARDIAC ARREST [None]
